FAERS Safety Report 4304814-8 (Version None)
Quarter: 2004Q1

REPORT INFORMATION
  Report Type: 
  Country: None (occurrence: None)
  Receive Date: 20040223
  Receipt Date: 20030212
  Transmission Date: 20041129
  Serious: No
  Sender: FDA-Public Use
  Company Number: TAP2003Q00356

PATIENT
  Age: 71 Year
  Sex: Male
  Weight: 93.8946 kg

DRUGS (17)
  1. LUPRON DEPOT-3 [Suspect]
     Indication: PROSTATE CANCER METASTATIC
     Dosage: 22.5 MG, 1 IN 3 M, UNKNOWN
     Dates: start: 20011224, end: 20020909
  2. VITAMIN E [Concomitant]
  3. CAMAS TEA [Concomitant]
  4. VITAMIN C (ASCORBIC ACID) [Concomitant]
  5. VITAMIN B12 [Concomitant]
  6. VITAMIN B6 [Concomitant]
  7. BETACAROTENE (BETACAROTENE) [Concomitant]
  8. MULTIVITAMIN WITH MINERALS (MULTIVITAMINS W/MINERALS) [Concomitant]
  9. GLUCOSAMINE (GLUCOSAMINE) [Concomitant]
  10. CHONDROITIN (CHONDROITIN SULFATE SODIUM) [Concomitant]
  11. MULTI-MINERAL (MINERAL SUPPLEMENTS) [Concomitant]
  12. FLAX OIL (LINSEED OIL0 [Concomitant]
  13. VEGE/FRUIT COMPLETE [Concomitant]
  14. RED CLOVER (RED CLOVER) [Concomitant]
  15. CAYENNE PEPPER [Concomitant]
  16. GARLIC(GARLIC) [Concomitant]
  17. ASPIRIN [Concomitant]

REACTIONS (7)
  - ARTHRITIS [None]
  - ASTHENIA [None]
  - ERECTILE DYSFUNCTION [None]
  - FAT TISSUE INCREASED [None]
  - HOT FLUSH [None]
  - HYPOAESTHESIA [None]
  - VENTRICULAR EXTRASYSTOLES [None]
